FAERS Safety Report 14156450 (Version 5)
Quarter: 2017Q4

REPORT INFORMATION
  Report Type: Report from Study
  Country: GR (occurrence: GR)
  Receive Date: 20171103
  Receipt Date: 20171214
  Transmission Date: 20180321
  Serious: Yes (Hospitalization)
  Sender: FDA-Public Use
  Company Number: GR-ROCHE-2016416

PATIENT
  Age: 56 Year
  Sex: Female
  Weight: 100 kg

DRUGS (5)
  1. BLOCATENS [Concomitant]
     Indication: TACHYCARDIA
     Route: 065
     Dates: start: 20171101
  2. AUGMENTIN [Concomitant]
     Active Substance: AMOXICILLIN\CLAVULANATE POTASSIUM
     Indication: URINARY TRACT INFECTION
     Route: 065
     Dates: start: 20171029, end: 20171104
  3. COBIMETINIB. [Suspect]
     Active Substance: COBIMETINIB
     Indication: MALIGNANT MELANOMA
     Dosage: (THREE, 20 MG TABLETS) ON DAYS 1 TO 21 ?MOST RECENT DOSE PRIOR TO SAE ONSET: 17/OCT/2017
     Route: 048
     Dates: start: 20170927
  4. VEMURAFENIB. [Suspect]
     Active Substance: VEMURAFENIB
     Indication: MALIGNANT MELANOMA
     Dosage: (FOUR TABLETS) TWICE DAILY ON DAYS 1 TO 28 OF EACH 28-DAY CYCLE?MOST RECENT DOSE PRIOR TO SAE ONSET:
     Route: 048
     Dates: start: 20170927
  5. CARVEDILEN [Concomitant]
     Indication: TACHYCARDIA
     Route: 065
     Dates: start: 20171030, end: 20171101

REACTIONS (1)
  - Fatigue [Recovered/Resolved]

NARRATIVE: CASE EVENT DATE: 20171022
